FAERS Safety Report 6595712 (Version 2)
Quarter: 2020Q3

REPORT INFORMATION
  Report Type: Report from Study
  Country: US (occurrence: US)
  Receive Date: 20080327
  Receipt Date: 20080417
  Transmission Date: 20201104
  Serious: Yes (Death, Hospitalization)
  Sender: FDA-Public Use
  Company Number: US-ROCHE-554299

PATIENT
  Age: 85 Year
  Sex: Female

DRUGS (1)
  1. IBANDRONIC ACID. [Suspect]
     Active Substance: IBANDRONIC ACID
     Indication: OSTEOPOROSIS
     Dosage: ON ORAL BONIVA FOR 3 MONTHS PRIOR TO HER DEATH
     Route: 048
     Dates: start: 200708, end: 20071019

REACTIONS (4)
  - Breast cancer [Fatal]
  - Soft tissue sarcoma [Fatal]
  - Hepatic cancer [Fatal]
  - Fatigue [Unknown]

NARRATIVE: CASE EVENT DATE: 20071001
